FAERS Safety Report 6588989-6 (Version None)
Quarter: 2010Q1

REPORT INFORMATION
  Report Type: 
  Country: None (occurrence: None)
  Receive Date: 20100218
  Receipt Date: 20100209
  Transmission Date: 20100710
  Serious: Yes (Death)
  Sender: FDA-Public Use
  Company Number: US-B.I. PHARMACEUTICALS,INC./RIDGEFIELD-2010-DE-00744GD

PATIENT
  Age: 14 Year
  Sex: Male

DRUGS (3)
  1. MELOXICAM [Suspect]
     Route: 048
  2. CITALOPRAM HYDROBROMIDE [Suspect]
     Route: 048
  3. METAXALONE [Suspect]
     Route: 048

REACTIONS (1)
  - DRUG ABUSE [None]
